FAERS Safety Report 5762331-2 (Version None)
Quarter: 2008Q2

REPORT INFORMATION
  Report Type: 
  Country: None (occurrence: None)
  Receive Date: 20080609
  Receipt Date: 20080603
  Transmission Date: 20081010
  Serious: Yes (Hospitalization)
  Sender: FDA-Public Use
  Company Number: US-BRISTOL-MYERS SQUIBB COMPANY-14187298

PATIENT
  Age: 53 Year
  Sex: Female

DRUGS (5)
  1. ABATACEPT [Suspect]
     Indication: CROHN'S DISEASE
     Route: 042
     Dates: start: 20071031
  2. OMEPRAZOLE [Concomitant]
  3. LOMOTIL [Concomitant]
  4. PERCOCET [Concomitant]
  5. TIGAN [Concomitant]

REACTIONS (4)
  - ABDOMINAL PAIN [None]
  - DIVERTICULITIS [None]
  - HYPOVOLAEMIA [None]
  - PYREXIA [None]
